FAERS Safety Report 4477965-5 (Version None)
Quarter: 2004Q4

REPORT INFORMATION
  Report Type: 
  Country: None (occurrence: None)
  Receive Date: 20041012
  Receipt Date: 20040107
  Transmission Date: 20050328
  Serious: No
  Sender: FDA-Public Use
  Company Number: AE04-03

PATIENT
  Sex: Female

DRUGS (3)
  1. VZIG [Suspect]
     Indication: IMMUNISATION
     Dosage: IM
     Route: 030
     Dates: start: 20020228, end: 20020228
  2. HORMONE PILLS [Concomitant]
  3. CLARITIN [Concomitant]

REACTIONS (16)
  - ADVERSE DRUG REACTION [None]
  - ARTHRALGIA [None]
  - ARTHRITIS [None]
  - ASTHENIA [None]
  - BLISTER [None]
  - DYSPNOEA [None]
  - FATIGUE [None]
  - HEADACHE [None]
  - IMPAIRED WORK ABILITY [None]
  - LABORATORY TEST ABNORMAL [None]
  - MALAISE [None]
  - NEUROPATHY [None]
  - PAIN [None]
  - PYREXIA [None]
  - RASH [None]
  - VARICELLA [None]
